FAERS Safety Report 7130637-0 (Version None)
Quarter: 2010Q4

REPORT INFORMATION
  Report Type: 
  Country: None (occurrence: None)
  Receive Date: 20101029
  Receipt Date: 20100621
  Transmission Date: 20110411
  Serious: No
  Sender: FDA-Public Use
  Company Number: US-002326

PATIENT
  Sex: Male

DRUGS (1)
  1. FIRMAGON [Suspect]
     Indication: PRODUCT USED FOR UNKNOWN INDICATION
     Dosage: (240 MG MG 1X/MONTH SUBCUTANEOUS
     Route: 058
     Dates: start: 20100611, end: 20100611

REACTIONS (3)
  - INJECTION SITE ERYTHEMA [None]
  - INJECTION SITE NODULE [None]
  - INJECTION SITE WARMTH [None]
